FAERS Safety Report 5282457-X (Version None)
Quarter: 2007Q1

REPORT INFORMATION
  Report Type: 
  Country: None (occurrence: None)
  Receive Date: 20070326
  Receipt Date: 20070319
  Transmission Date: 20070707
  Serious: Yes (Other)
  Sender: FDA-Public Use
  Company Number: 237046

PATIENT
  Age: 37 Year
  Sex: Female
  Weight: 64.9 kg

DRUGS (5)
  1. XOLAIR [Suspect]
     Indication: ASTHMA
     Dosage: 300 MG, Q4W, SUBCUTANEOUS
     Route: 058
     Dates: start: 20070123, end: 20070123
  2. ZYRTEC-D 12 HOUR [Concomitant]
  3. ADVAIR DISKUS 100/50 [Concomitant]
  4. XOPENEX [Concomitant]
  5. SINGULAIR [Concomitant]

REACTIONS (1)
  - DRUG HYPERSENSITIVITY [None]
